FAERS Safety Report 10177097 (Version 1)
Quarter: 2014Q2

REPORT INFORMATION
  Report Type: Spontaneous
  Country: US (occurrence: US)
  Receive Date: 20140516
  Receipt Date: 20140516
  Transmission Date: 20141212
  Serious: No
  Sender: FDA-Public Use
  Company Number: US-009507513-1405USA006638

PATIENT
  Age: 21 Year
  Sex: Female
  Weight: 53.52 kg

DRUGS (1)
  1. NEXPLANON [Suspect]
     Indication: CONTRACEPTION
     Dosage: 1 DF, UNK; 1 ROD FOR 3 YEARS; INSERTED IN LEFT ARM
     Route: 059
     Dates: start: 20140430

REACTIONS (1)
  - Muscle spasms [Not Recovered/Not Resolved]
